FAERS Safety Report 5336616-8 (Version None)
Quarter: 2007Q2

REPORT INFORMATION
  Report Type: 
  Country: None (occurrence: None)
  Receive Date: 20070524
  Receipt Date: 20070515
  Transmission Date: 20071010
  Serious: No
  Sender: FDA-Public Use
  Company Number: US020133

PATIENT
  Sex: Female

DRUGS (1)
  1. FENTORA [Suspect]
     Indication: BACK PAIN
     Dosage: 100  UG BUCCAL
     Route: 002

REACTIONS (2)
  - DRUG PRESCRIBING ERROR [None]
  - INTERCEPTED MEDICATION ERROR [None]
